FAERS Safety Report 8746194 (Version 2)
Quarter: 2013Q1

REPORT INFORMATION
  Report Type: Spontaneous
  Country: BR (occurrence: BR)
  Receive Date: 20120827
  Receipt Date: 20130118
  Transmission Date: 20140127
  Serious: Yes (Other)
  Sender: FDA-Public Use
  Company Number: PHHY2012BR073166

PATIENT
  Sex: Female

DRUGS (6)
  1. GALVUS MET [Suspect]
     Dosage: 1 DF, BID (1000 MG METF AND 50 MG VILD)
  2. DIOVAN TRIPLE [Suspect]
     Indication: HYPERTENSION
     Dosage: 1 DF, DAILY (160 MG VALS, 12.5 MG HCT AND 5 MG AMLO)
     Route: 048
     Dates: start: 2012
  3. ATENOLOL [Concomitant]
     Indication: HYPERTENSION
     Dosage: 2 DF, DAILY
     Route: 048
  4. AGLUCOSE [Concomitant]
     Indication: DIABETES MELLITUS
     Dosage: UNK UKN, UNK
  5. AGLITIL [Concomitant]
     Dosage: UNK UKN, UNK
  6. GLIMEPIRIDE [Concomitant]
     Indication: DIABETES MELLITUS
     Dosage: 2 DF, DAILY
     Route: 048
     Dates: start: 2012

REACTIONS (4)
  - Coma [Not Recovered/Not Resolved]
  - Blood pressure inadequately controlled [Not Recovered/Not Resolved]
  - Blood glucose increased [Not Recovered/Not Resolved]
  - Headache [Not Recovered/Not Resolved]
